FAERS Safety Report 17999713 (Version 6)
Quarter: 2020Q3

REPORT INFORMATION
  Report Type: Report from Study
  Country: CO (occurrence: CO)
  Receive Date: 20200709
  Receipt Date: 20200909
  Transmission Date: 20201103
  Serious: Yes (Hospitalization, Other)
  Sender: FDA-Public Use
  Company Number: CO-BRISTOL-MYERS SQUIBB COMPANY-BMS-2017-019907

PATIENT
  Age: 41 Year
  Sex: Female

DRUGS (2)
  1. ABATACEPT [Suspect]
     Active Substance: ABATACEPT
     Indication: RHEUMATOID ARTHRITIS
     Dosage: 500 MILLIGRAM, Q4WK
     Route: 042
     Dates: start: 20160817
  2. PREDNISOLONE. [Concomitant]
     Active Substance: PREDNISOLONE
     Indication: PRODUCT USED FOR UNKNOWN INDICATION
     Dosage: UNK
     Route: 065

REACTIONS (16)
  - Gait disturbance [Unknown]
  - Herpes ophthalmic [Recovering/Resolving]
  - Vaginal haemorrhage [Recovering/Resolving]
  - Pain [Recovering/Resolving]
  - Hand deformity [Recovering/Resolving]
  - Pneumonia [Recovering/Resolving]
  - Inflammation [Recovering/Resolving]
  - Drug ineffective [Unknown]
  - Vision blurred [Unknown]
  - Urinary tract infection [Recovering/Resolving]
  - Decreased immune responsiveness [Unknown]
  - Pain in extremity [Recovering/Resolving]
  - Limb discomfort [Recovering/Resolving]
  - Weight decreased [Unknown]
  - Arthralgia [Recovering/Resolving]
  - Injury corneal [Unknown]

NARRATIVE: CASE EVENT DATE: 20190219
